FAERS Safety Report 7432498-9 (Version None)
Quarter: 2011Q2

REPORT INFORMATION
  Report Type: 
  Country: None (occurrence: None)
  Receive Date: 20110422
  Receipt Date: 20110411
  Transmission Date: 20111010
  Serious: No
  Sender: FDA-Public Use
  Company Number: US-B.I. PHARMACEUTICALS,INC./RIDGEFIELD-2011-BP-10424BP

PATIENT
  Age: 80 Year
  Sex: Female

DRUGS (5)
  1. CARVEDILOL [Suspect]
     Indication: HYPERTENSION
     Dates: start: 20110408
  2. PRADAXA [Suspect]
     Indication: ATRIAL FIBRILLATION
     Dosage: 300 MG
     Route: 048
     Dates: start: 20110408
  3. SYNTHROID [Concomitant]
     Indication: HYPOTHYROIDISM
  4. LOSARTAN POTASSIUM [Suspect]
     Indication: HYPERTENSION
     Dates: start: 20110408
  5. PREMARIN [Concomitant]
     Indication: MENOPAUSE

REACTIONS (4)
  - HYPERTENSION [None]
  - HEART RATE INCREASED [None]
  - TACHYCARDIA [None]
  - HEADACHE [None]
